FAERS Safety Report 19789292 (Version 1)
Quarter: 2021Q3

REPORT INFORMATION
  Report Type: Spontaneous
  Country: CA (occurrence: CA)
  Receive Date: 20210905
  Receipt Date: 20210905
  Transmission Date: 20211014
  Serious: Yes (Other)
  Sender: FDA-Public Use
  Company Number: CA-TEVA-2021-CA-1948253

PATIENT
  Age: 69 Year
  Sex: Female

DRUGS (5)
  1. METFORMIN [Suspect]
     Active Substance: METFORMIN HYDROCHLORIDE
     Indication: TYPE 2 DIABETES MELLITUS
     Route: 065
  2. BUDESONIDE. [Concomitant]
     Active Substance: BUDESONIDE
  3. ELIQUIS [Concomitant]
     Active Substance: APIXABAN
  4. PLAVIX [Concomitant]
     Active Substance: CLOPIDOGREL BISULFATE
  5. RALOXIFENE. [Concomitant]
     Active Substance: RALOXIFENE

REACTIONS (7)
  - Amnesia [Unknown]
  - Confusional state [Unknown]
  - Neuropathy peripheral [Unknown]
  - Transient ischaemic attack [Unknown]
  - Vitamin B12 deficiency [Unknown]
  - Anaemia [Unknown]
  - Cognitive disorder [Unknown]
